FAERS Safety Report 23819383 (Version 2)
Quarter: 2024Q2

REPORT INFORMATION
  Report Type: Spontaneous
  Country: GB (occurrence: GB)
  Receive Date: 20240506
  Receipt Date: 20240509
  Transmission Date: 20240716
  Serious: Yes (Hospitalization, Other)
  Sender: FDA-Public Use
  Company Number: None

PATIENT
  Age: 85 Year
  Sex: Male

DRUGS (5)
  1. CLOPIDOGREL [Suspect]
     Active Substance: CLOPIDOGREL BISULFATE
     Indication: Product used for unknown indication
     Dosage: 1 DOSAGE FORM, QD (ONE TO BE TAKEN EACH DAY )
     Route: 065
  2. SILDENAFIL CITRATE [Suspect]
     Active Substance: SILDENAFIL CITRATE
     Indication: Product used for unknown indication
     Dosage: 1 DOSAGE FORM (ONE TO BE TAKEN WHEN NECESSARY )
     Route: 065
  3. DESLORATADINE [Concomitant]
     Active Substance: DESLORATADINE
     Dosage: 1 DOSAGE FORM, QD (ONE TO BE TAKEN EACH DAY)
     Route: 065
  4. TAMSULOSIN [Concomitant]
     Active Substance: TAMSULOSIN
     Dosage: 1 DOSAGE FORM, QD (MODIFIED-RELEASE CAPSULES ONE TO BE TAKEN EACH DAY)
     Route: 065
  5. Comirnaty original + omicron BA.4/BA.5 [Concomitant]
     Dosage: 0.3 MILLILITER ( DISPERSION FOR INJECTION MULTIDOSE VIALS (PFIZER LTD) 0.3 ML )
     Route: 030
     Dates: start: 20230930

REACTIONS (1)
  - Haemorrhage intracranial [Recovered/Resolved with Sequelae]

NARRATIVE: CASE EVENT DATE: 20231020
